FAERS Safety Report 7978982-0 (Version None)
Quarter: 2011Q4

REPORT INFORMATION
  Report Type: 
  Country: None (occurrence: None)
  Receive Date: 20111201
  Receipt Date: 20111123
  Transmission Date: 20120403
  Serious: Yes (Hospitalization, Other)
  Sender: FDA-Public Use
  Company Number: 2011SP026441

PATIENT
  Age: 30 Year
  Sex: Female
  Weight: 110.2241 kg

DRUGS (3)
  1. NUVARING [Suspect]
     Indication: CONTRACEPTION
     Dates: start: 20040501, end: 20070910
  2. NUVARING [Suspect]
     Indication: CONTRACEPTION
     Dates: start: 20080703, end: 20090626
  3. NUVARING [Suspect]
     Indication: CONTRACEPTION
     Dates: start: 20060601, end: 20090626

REACTIONS (15)
  - METRORRHAGIA [None]
  - VULVOVAGINAL DRYNESS [None]
  - ADNEXA UTERI PAIN [None]
  - DEEP VEIN THROMBOSIS [None]
  - ANGINA PECTORIS [None]
  - HEADACHE [None]
  - BREAST TENDERNESS [None]
  - SNORING [None]
  - PULMONARY EMBOLISM [None]
  - HYPERCOAGULATION [None]
  - FIBROMYALGIA [None]
  - PREGNANCY [None]
  - SOMNOLENCE [None]
  - MATERNAL EXPOSURE BEFORE PREGNANCY [None]
  - URINARY HESITATION [None]
